FAERS Safety Report 8962489 (Version 1)
Quarter: 2012Q4

REPORT INFORMATION
  Report Type: 
  Country: KR (occurrence: KR)
  Receive Date: 20121213
  Receipt Date: 20121213
  Transmission Date: 20130627
  Serious: Yes (Other)
  Sender: FDA-Public Use
  Company Number: KR-MYLANLABS-2012S1024853

PATIENT
  Age: 83 Year
  Sex: Male

DRUGS (4)
  1. FLUOROURACIL [Suspect]
     Indication: COLON CANCER STAGE III
     Dosage: 400 mg/m2 bolus infusion
     Route: 050
  2. FLUOROURACIL [Suspect]
     Indication: COLON CANCER STAGE III
     Dosage: continuous infusion of 600 mg/m2 for 22h on D1 and D2
     Route: 050
  3. FOLINIC ACID [Concomitant]
     Indication: COLON CANCER STAGE III
     Dosage: 200 mg/m2 as a continuous infusion for 2h before fluorouracil on D1 and D2
     Route: 050
  4. OXALIPLATIN [Concomitant]
     Indication: COLON CANCER STAGE III
     Dosage: 85 mg/m2 infusion on D1
     Route: 050

REACTIONS (1)
  - Arteriospasm coronary [Recovered/Resolved]
